FAERS Safety Report 9218996 (Version 2)
Quarter: 2013Q2

REPORT INFORMATION
  Report Type: Spontaneous
  Country: US (occurrence: US)
  Receive Date: 20130409
  Receipt Date: 20130503
  Transmission Date: 20140414
  Serious: Yes (Death, Hospitalization, Disabling)
  Sender: FDA-Public Use
  Company Number: US-CELGENEUS-163-21880-13040622

PATIENT
  Age: 84 Year
  Sex: Male

DRUGS (7)
  1. REVLIMID [Suspect]
     Indication: MYELODYSPLASTIC SYNDROME
     Dosage: 7.5 MILLIGRAM
     Route: 048
     Dates: start: 20130329, end: 20130401
  2. ACARBOSE [Concomitant]
     Indication: TYPE 2 DIABETES MELLITUS
     Dosage: 1/2 TAB
     Route: 048
  3. COLESTIPOL [Concomitant]
     Indication: BLOOD CHOLESTEROL INCREASED
     Dosage: 30 MILLIGRAM
     Route: 048
  4. EPOETIN ALFA [Concomitant]
     Indication: ANAEMIA
     Dosage: 40,000 UNIT
     Route: 058
     Dates: start: 20130320, end: 20130328
  5. OMEPRAZOLE [Concomitant]
     Indication: GASTROOESOPHAGEAL REFLUX DISEASE
     Route: 048
  6. ALBUTEROL [Concomitant]
     Indication: GASTROOESOPHAGEAL REFLUX DISEASE
     Dosage: 2 PUFFS
     Route: 048
  7. PLATELETS [Concomitant]
     Indication: PRODUCT USED FOR UNKNOWN INDICATION
     Route: 041

REACTIONS (2)
  - Respiratory failure [Fatal]
  - Myelodysplastic syndrome [Fatal]
